FAERS Safety Report 6715225-X (Version None)
Quarter: 2010Q2

REPORT INFORMATION
  Report Type: 
  Country: None (occurrence: None)
  Receive Date: 20100507
  Receipt Date: 20100413
  Transmission Date: 20101027
  Serious: Yes (Other)
  Sender: FDA-Public Use
  Company Number: ZA-BRISTOL-MYERS SQUIBB COMPANY-15063019

PATIENT
  Age: 67 Year
  Sex: Female

DRUGS (1)
  1. CARBIDOPA + LEVODOPA [Suspect]
     Indication: PARKINSON'S DISEASE
     Dosage: 1 DF=50/200 MG TABLET
     Route: 048
     Dates: start: 20100410, end: 20100410

REACTIONS (3)
  - APHASIA [None]
  - CONVULSION [None]
  - VISION BLURRED [None]
